FAERS Safety Report 11181397 (Version 2)
Quarter: 2015Q2

REPORT INFORMATION
  Report Type: Report from Study
  Country: US (occurrence: US)
  Receive Date: 20150611
  Receipt Date: 20150622
  Transmission Date: 20150821
  Serious: Yes (Hospitalization)
  Sender: FDA-Public Use
  Company Number: US-TALECRIS-GTI003228

PATIENT
  Age: 57 Year
  Sex: Female
  Weight: 56 kg

DRUGS (5)
  1. GAMUNEX-C [Suspect]
     Active Substance: HUMAN IMMUNOGLOBULIN G
     Indication: IMMUNODEFICIENCY COMMON VARIABLE
     Route: 058
     Dates: start: 20141003, end: 20141203
  2. VALACYCLOVIR [Concomitant]
     Active Substance: VALACYCLOVIR HYDROCHLORIDE
  3. XANAX [Concomitant]
     Active Substance: ALPRAZOLAM
  4. PRAVASTATIN [Concomitant]
     Active Substance: PRAVASTATIN\PRAVASTATIN SODIUM
  5. OMEPRAZOLE. [Concomitant]
     Active Substance: OMEPRAZOLE

REACTIONS (14)
  - Chest pain [Recovered/Resolved]
  - Aspergillus infection [None]
  - Cough [Recovered/Resolved]
  - Night sweats [Recovered/Resolved]
  - Lobar pneumonia [None]
  - Pulmonary granuloma [None]
  - Lymphohistiocytosis [None]
  - Pulmonary mass [None]
  - Condition aggravated [None]
  - Lower respiratory tract inflammation [Recovered/Resolved]
  - Dyspnoea [Recovered/Resolved]
  - Fatigue [Recovered/Resolved]
  - Necrosis [Recovered/Resolved]
  - No therapeutic response [None]

NARRATIVE: CASE EVENT DATE: 201410
